FAERS Safety Report 7864092-X (Version None)
Quarter: 2011Q4

REPORT INFORMATION
  Report Type: 
  Country: None (occurrence: None)
  Receive Date: 20111028
  Receipt Date: 20111018
  Transmission Date: 20120403
  Serious: Yes (Hospitalization)
  Sender: FDA-Public Use
  Company Number: JP-JNJFOC-20110909639

PATIENT
  Sex: Male
  Weight: 62 kg

DRUGS (14)
  1. REMICADE [Suspect]
     Indication: COLITIS ULCERATIVE
     Dosage: FIRST DOSE
     Route: 042
     Dates: start: 20101104
  2. PREDNISOLONE [Concomitant]
     Indication: COLITIS ULCERATIVE
     Dosage: 3T/2T2 X
     Route: 048
  3. AVAPRO [Concomitant]
     Indication: HYPERTENSION
     Dosage: 0.5TAB
     Route: 048
  4. LIPIDIL [Concomitant]
     Indication: HYPERLIPIDAEMIA
     Route: 048
  5. CEFAZOLIN SODIUM [Concomitant]
     Indication: BOWEL MOVEMENT IRREGULARITY
     Route: 048
  6. CYMBALTA [Concomitant]
     Indication: DEPRESSION
     Route: 048
  7. REMICADE [Suspect]
     Dosage: SEVENTH DOSE
     Route: 042
     Dates: start: 20110819
  8. RECALBON [Concomitant]
     Indication: OSTEOPOROSIS
     Route: 048
  9. ASPARA-CA [Concomitant]
     Indication: OSTEOPOROSIS
     Route: 048
  10. MAGMITT [Concomitant]
     Indication: CONSTIPATION
     Route: 048
  11. TRAZODONE HYDROCHLORIDE [Concomitant]
     Indication: DEPRESSION
     Route: 048
  12. ISONIAZID [Concomitant]
     Indication: ANTIBIOTIC PROPHYLAXIS
     Route: 048
     Dates: start: 20101104, end: 20110830
  13. ASACOL [Concomitant]
     Indication: COLITIS ULCERATIVE
     Route: 048
  14. EDIROL [Concomitant]
     Indication: OSTEOPOROSIS
     Route: 048

REACTIONS (2)
  - HAEMORRHAGE SUBCUTANEOUS [None]
  - GENERALISED OEDEMA [None]
